FAERS Safety Report 7683982-4 (Version None)
Quarter: 2011Q3

REPORT INFORMATION
  Report Type: 
  Country: None (occurrence: None)
  Receive Date: 20110815
  Receipt Date: 20110719
  Transmission Date: 20111222
  Serious: No
  Sender: FDA-Public Use
  Company Number: US-BAYER-2011-064205

PATIENT
  Sex: Male

DRUGS (3)
  1. ALEVE (CAPLET) [Suspect]
  2. ANTIHISTAMINES [Concomitant]
  3. MULTI-VITAMIN [Concomitant]

REACTIONS (2)
  - PAIN [None]
  - NO ADVERSE EVENT [None]
